FAERS Safety Report 10270792 (Version 1)
Quarter: 2014Q1

REPORT INFORMATION
  Report Type: Spontaneous
  Country: US (occurrence: None)
  Receive Date: 20140306
  Receipt Date: 20140306
  Transmission Date: 20141002
  Serious: Yes (Other)
  Sender: FDA-Public Use
  Company Number: 163-21880-13082122

PATIENT
  Age: 76 Year
  Sex: Female
  Weight: 74.84 kg

DRUGS (8)
  1. REVLIMID ( LENALIDOMIDE) ( 10 MILLIGRAM, CAPSULES) [Suspect]
     Indication: PLASMA CELL MYELOMA
     Dosage: 10 MG, 1 IN 1 D, PO
     Route: 048
     Dates: start: 20121121
  2. DEXAMETHASONE ( DEXAMETHASONE) UNKNOWN [Concomitant]
  3. CLONAZEPAM ( CLONAZEPAM) ( TABLETS) [Concomitant]
  4. LISINOPRIL HCTZ ( ZESTORETIC) (UNKNOWN) [Concomitant]
  5. OMEPRAZOLE ( OMEPRAZOLE) (UNKNOWN) [Concomitant]
  6. NAPROXEN SODIUM ( NAPROXEN SODIUM) ( UNKNOWN) [Concomitant]
  7. PRIMIDONE ( PRIMIDONE) (TABLETS) [Concomitant]
  8. VITAMIN D ( ERGOCALCIFEROL) (TABLETS) [Concomitant]

REACTIONS (1)
  - Pulmonary thrombosis [None]
